FAERS Safety Report 8860738 (Version 1)
Quarter: 2012Q4

REPORT INFORMATION
  Report Type: 
  Country: US (occurrence: US)
  Receive Date: 20121025
  Receipt Date: 20121025
  Transmission Date: 20130627
  Serious: Yes (Hospitalization)
  Sender: FDA-Public Use
  Company Number: CHPA2012US022173

PATIENT
  Age: 86 Year
  Sex: Female

DRUGS (3)
  1. EXCEDRIN ES BACK + BODY [Suspect]
     Indication: BACK PAIN
     Dosage: 1 caplet as needed
     Route: 048
     Dates: start: 2010
  2. EXCEDRIN PM [Suspect]
     Indication: BACK PAIN
     Dosage: 1/2 to 1 pill as needed
     Route: 048
  3. BUFFERIN                           /00002701/ [Concomitant]
     Indication: BACK PAIN
     Dosage: 1 to 2 DF as needed

REACTIONS (2)
  - Cardiac failure congestive [Not Recovered/Not Resolved]
  - Incorrect dose administered [Unknown]
